FAERS Safety Report 7941966-2 (Version None)
Quarter: 2011Q4

REPORT INFORMATION
  Report Type: 
  Country: None (occurrence: None)
  Receive Date: 20111114
  Receipt Date: 20110505
  Transmission Date: 20120403
  Serious: Yes (Other)
  Sender: FDA-Public Use
  Company Number: 2011028778

PATIENT
  Age: 34 Year
  Sex: Female
  Weight: 54.4316 kg

DRUGS (12)
  1. AUGTNENTIN (AUGMENTIN /00756801/) [Concomitant]
  2. WELLBUTRIN (BUPRORION) [Concomitant]
  3. EPIPEN [Concomitant]
  4. ACETAMINOPHEN [Concomitant]
  5. DIPHENHYDRAMINE HCL [Concomitant]
  6. LIDOCAINE [Concomitant]
  7. ZOLOFT [Concomitant]
  8. HIZENTRA [Suspect]
     Indication: IMMUNODEFICIENCY COMMON VARIABLE
     Dosage: SEE IMAGE
     Route: 058
     Dates: start: 20100916
  9. HIZENTRA [Suspect]
  10. HIZENTRA [Suspect]
  11. SYMBICORT [Concomitant]
  12. VENTOLIN HFA (SALBUTAMOL SULFATE) [Concomitant]

REACTIONS (3)
  - SWELLING FACE [None]
  - RASH [None]
  - ANGIOEDEMA [None]
